FAERS Safety Report 6264344-3 (Version None)
Quarter: 2009Q3

REPORT INFORMATION
  Report Type: 
  Country: None (occurrence: None)
  Receive Date: 20090708
  Receipt Date: 20090623
  Transmission Date: 20100115
  Serious: Yes (Hospitalization)
  Sender: FDA-Public Use
  Company Number: 2009-02610

PATIENT
  Age: 75 Year
  Sex: Female

DRUGS (5)
  1. VELCADE [Suspect]
     Indication: MULTIPLE MYELOMA
     Dosage: 1.3 MG/M2, INTRAVENOUS
     Route: 042
  2. PAXIL [Suspect]
     Indication: SCHIZOPHRENIA
     Dosage: 1 DF, ORAL
     Route: 048
  3. VITAMEDIN CAPSULE (PYRIDOXINE HYDROCHLORIDE, CYANOCOBALAMIN, BENFOTIAM [Concomitant]
  4. JUVELA NICOTINATE          (TOCOPHERYL NICOTINATE) [Concomitant]
  5. MARZULENE S          (LEVOGLUTAMIDE, SODIUM GUALENATE) [Concomitant]

REACTIONS (3)
  - COMMUNICATION DISORDER [None]
  - INAPPROPRIATE ANTIDIURETIC HORMONE SECRETION [None]
  - LOSS OF CONSCIOUSNESS [None]
